FAERS Safety Report 6722645-6 (Version None)
Quarter: 2010Q2

REPORT INFORMATION
  Report Type: 
  Country: None (occurrence: None)
  Receive Date: 20100512
  Receipt Date: 20100503
  Transmission Date: 20101027
  Serious: Yes (Hospitalization)
  Sender: FDA-Public Use
  Company Number: AT-WYE-H14941410

PATIENT
  Sex: Female
  Weight: 78 kg

DRUGS (7)
  1. SIROLIMUS [Suspect]
     Indication: PROPHYLAXIS AGAINST TRANSPLANT REJECTION
     Route: 048
     Dates: start: 20091117
  2. LOSARTAN POTASSIUM [Suspect]
     Indication: PROPHYLAXIS AGAINST TRANSPLANT REJECTION
     Route: 048
  3. CELLCEPT [Concomitant]
     Indication: PROPHYLAXIS AGAINST TRANSPLANT REJECTION
     Dosage: UNSPECIFIED
     Dates: start: 20060703
  4. PARIET [Concomitant]
     Indication: PROPHYLAXIS AGAINST GASTROINTESTINAL ULCER
     Dosage: UNSPECIFIED
     Dates: start: 20070214
  5. SORTIS ^PARKE-DAVIS^ [Concomitant]
     Indication: HYPERLIPIDAEMIA
     Dosage: UNSPECIFIED
     Dates: start: 20060529
  6. BLINDED THERAPY [Suspect]
     Indication: PROPHYLAXIS AGAINST TRANSPLANT REJECTION
     Route: 048
  7. FERRETAB COMP [Concomitant]
     Indication: ANAEMIA
     Dosage: UNSPECIFIED
     Dates: start: 20090519

REACTIONS (1)
  - CEREBRAL INFARCTION [None]
